FAERS Safety Report 9468508 (Version 5)
Quarter: 2016Q1

REPORT INFORMATION
  Report Type: Spontaneous
  Country: US (occurrence: US)
  Receive Date: 20130821
  Receipt Date: 20160331
  Transmission Date: 20160526
  Serious: Yes (Hospitalization, Other)
  Sender: FDA-Public Use
  Company Number: US-PFIZER INC-2013186455

PATIENT
  Age: 73 Year
  Sex: Female
  Weight: 49.89 kg

DRUGS (8)
  1. SYNTHROID [Concomitant]
     Active Substance: LEVOTHYROXINE SODIUM
     Dosage: 0.5 MG, UNK
  2. KLONOPIN [Concomitant]
     Active Substance: CLONAZEPAM
     Indication: DEPRESSION
     Dosage: 1 MG, UNK
  3. LYRICA [Suspect]
     Active Substance: PREGABALIN
     Indication: ERYTHEMA
     Dosage: UNK, 1X/DAY
     Route: 048
     Dates: start: 2013
  4. LYRICA [Suspect]
     Active Substance: PREGABALIN
     Dosage: 50 MG, 2X/DAY
     Dates: start: 201507
  5. LYRICA [Suspect]
     Active Substance: PREGABALIN
     Indication: BURNING SENSATION
     Dosage: 50 MG, 2X/DAY
     Route: 048
     Dates: start: 2013
  6. DEMADEX [Concomitant]
     Active Substance: TORSEMIDE
     Dosage: UNK
     Dates: end: 2014
  7. LYRICA [Suspect]
     Active Substance: PREGABALIN
     Indication: PAIN
     Dosage: 50 MG, 2X/DAY
     Route: 048
     Dates: start: 20150512
  8. KLONOPIN [Concomitant]
     Active Substance: CLONAZEPAM
     Dosage: 0.5 PILL AT NIGHT

REACTIONS (15)
  - Fall [Unknown]
  - Migraine [Unknown]
  - Tendonitis [Recovered/Resolved]
  - Gait disturbance [Unknown]
  - Pelvic fracture [Unknown]
  - Sciatica [Recovered/Resolved]
  - Bursitis [Recovered/Resolved]
  - Constipation [Unknown]
  - Cellulitis [Unknown]
  - Headache [Unknown]
  - Dizziness [Unknown]
  - Dry mouth [Unknown]
  - Drug hypersensitivity [Unknown]
  - Femur fracture [Not Recovered/Not Resolved]
  - Drug ineffective [Not Recovered/Not Resolved]

NARRATIVE: CASE EVENT DATE: 2013
